FAERS Safety Report 23111034 (Version 1)
Quarter: 2023Q4

REPORT INFORMATION
  Report Type: Spontaneous
  Country: US (occurrence: US)
  Receive Date: 20231026
  Receipt Date: 20231026
  Transmission Date: 20240109
  Serious: Yes (Hospitalization, Other)
  Sender: FDA-Public Use
  Company Number: US-MLMSERVICE-20231005-4584698-1

PATIENT
  Age: 54 Year
  Sex: Female

DRUGS (2)
  1. METHOTREXATE [Suspect]
     Active Substance: METHOTREXATE
     Indication: Rheumatoid arthritis
     Dosage: UNKNOWN
     Route: 065
  2. PREDNISONE [Suspect]
     Active Substance: PREDNISONE
     Indication: Rheumatoid arthritis
     Dosage: UNKNOWN
     Route: 065

REACTIONS (9)
  - Thalamic infarction [Unknown]
  - Central nervous system vasculitis [Unknown]
  - Cerebral infarction [Unknown]
  - Systemic candida [Unknown]
  - Herpes simplex viraemia [Unknown]
  - Brain stem infarction [Unknown]
  - JC virus infection [Unknown]
  - Meningitis pneumococcal [Unknown]
  - Cerebellar infarction [Unknown]
